FAERS Safety Report 4586226-5 (Version None)
Quarter: 2005Q1

REPORT INFORMATION
  Report Type: 
  Country: None (occurrence: None)
  Receive Date: 20050125
  Receipt Date: 20041206
  Transmission Date: 20050727
  Serious: No
  Sender: FDA-Public Use
  Company Number: US_0411108310

PATIENT
  Age: 81 Year
  Sex: Female

DRUGS (11)
  1. FORTEO [Suspect]
     Indication: OSTEOPOROSIS
     Dates: start: 20041106
  2. ASPIRIN [Concomitant]
  3. ZOCOR (SIMVASTATIN RATIOPHARM) [Concomitant]
  4. GARLIC [Concomitant]
  5. PAXIL [Concomitant]
  6. RELAFEN [Concomitant]
  7. FOSAMAX [Concomitant]
  8. HYDROCHLOROTHIAZIDE [Concomitant]
  9. XANAX (ALPRAZOLAM DUM) [Concomitant]
  10. DIOVAN [Concomitant]
  11. CALCIUM GLUCONATE [Concomitant]

REACTIONS (11)
  - ASTHENIA [None]
  - BLOOD PRESSURE INCREASED [None]
  - CONTUSION [None]
  - EPISTAXIS [None]
  - FATIGUE [None]
  - GAIT DISTURBANCE [None]
  - INJECTION SITE HAEMORRHAGE [None]
  - MUSCLE SPASMS [None]
  - NASOPHARYNGITIS [None]
  - RHINORRHOEA [None]
  - TREMOR [None]
